FAERS Safety Report 25106191 (Version 1)
Quarter: 2025Q1

REPORT INFORMATION
  Report Type: Spontaneous
  Country: US (occurrence: None)
  Receive Date: 20250320
  Receipt Date: 20250320
  Transmission Date: 20250408
  Serious: Yes (Hospitalization)
  Sender: FDA-CTU
  Company Number: None

PATIENT
  Age: 56 Year
  Sex: Male
  Weight: 133 kg

DRUGS (1)
  1. SEMAGLUTIDE [Suspect]
     Active Substance: SEMAGLUTIDE
     Indication: Diabetes mellitus
     Route: 058
     Dates: start: 20241112, end: 20241213

REACTIONS (4)
  - Impaired gastric emptying [None]
  - Diarrhoea [None]
  - Blood magnesium decreased [None]
  - Dehydration [None]

NARRATIVE: CASE EVENT DATE: 20241211
